FAERS Safety Report 18629040 (Version 1)
Quarter: 2020Q4

REPORT INFORMATION
  Report Type: Spontaneous
  Country: RU (occurrence: RU)
  Receive Date: 20201217
  Receipt Date: 20201217
  Transmission Date: 20210114
  Serious: Yes (Death)
  Sender: FDA-Public Use
  Company Number: RU-PFIZER INC-2020498167

PATIENT

DRUGS (2)
  1. PEMBROLIZUMAB. [Suspect]
     Active Substance: PEMBROLIZUMAB
     Dosage: UNK
     Dates: end: 202011
  2. AXITINIB [Suspect]
     Active Substance: AXITINIB
     Dosage: 10 UNK, DAILY
     Dates: end: 202011

REACTIONS (2)
  - Off label use [Unknown]
  - Viral infection [Fatal]

NARRATIVE: CASE EVENT DATE: 202011
